FAERS Safety Report 6518006 (Version 3)
Quarter: 2024Q1

REPORT INFORMATION
  Report Type: Spontaneous
  Country: US (occurrence: US)
  Receive Date: 20080102
  Receipt Date: 20240313
  Transmission Date: 20240410
  Serious: Yes (Hospitalization, Other)
  Sender: FDA-Public Use
  Company Number: US-AMGEN-US257496

PATIENT
  Age: 94 Year
  Sex: Female

DRUGS (4)
  1. EPOETIN ALFA [Suspect]
     Active Substance: ERYTHROPOIETIN
     Indication: Anaemia of malignant disease
     Dosage: 40000 INTERNATIONAL UNIT, QWK
     Route: 058
     Dates: start: 20071023, end: 20071126
  2. RANITIDINE [Concomitant]
     Active Substance: RANITIDINE
     Dosage: 150 MILLIGRAM, BID
     Route: 065
     Dates: start: 20071117
  3. DIPHENHYDRAMINE HYDROCHLORIDE [Concomitant]
     Active Substance: DIPHENHYDRAMINE HYDROCHLORIDE
     Dosage: 50 MILLIGRAM, Q6H
     Route: 065
     Dates: start: 20071117
  4. METHYLPREDNISOLONE [Concomitant]
     Active Substance: METHYLPREDNISOLONE
     Dosage: UNK
     Route: 065
     Dates: start: 20071117

REACTIONS (3)
  - Erythema [Unknown]
  - Peripheral swelling [Unknown]
  - Stevens-Johnson syndrome [Unknown]

NARRATIVE: CASE EVENT DATE: 20071117
